FAERS Safety Report 8622377 (Version 2)
Quarter: 2012Q4

REPORT INFORMATION
  Report Type: 
  Country: FR (occurrence: FR)
  Receive Date: 20120619
  Receipt Date: 20121128
  Transmission Date: 20130627
  Serious: Yes (Hospitalization)
  Sender: FDA-Public Use
  Company Number: FR-SANOFI-AVENTIS-2012SA041748

PATIENT
  Age: 71 Year
  Sex: Male

DRUGS (11)
  1. TAXOTERE [Suspect]
     Indication: LUNG CARCINOMA
     Route: 042
     Dates: start: 20120322, end: 20120322
  2. SOLUPRED [Suspect]
     Indication: LUNG CARCINOMA
     Dosage: frequency: 50 mg twice in 1 minute
     Route: 048
     Dates: start: 20120321, end: 20120323
  3. CISPLATIN [Suspect]
     Indication: LUNG CARCINOMA
     Route: 042
     Dates: start: 20120322, end: 20120322
  4. ZOPHREN [Suspect]
     Indication: NAUSEA PROPHYLAXIS
     Dosage: strength: 8 mg
     Route: 048
     Dates: start: 20120322, end: 20120325
  5. EMEND [Suspect]
     Indication: LUNG CARCINOMA
     Dosage: strength: 125 mg
     Route: 048
     Dates: start: 20120322, end: 20120325
  6. ISOPTINE [Suspect]
     Indication: DRUG USE FOR UNKNOWN INDICATION
     Route: 048
     Dates: start: 20120109, end: 20120322
  7. GRANOCYTE [Suspect]
     Indication: DRUG USE FOR UNKNOWN INDICATION
     Route: 065
     Dates: start: 20120322, end: 20120325
  8. OXYNORM [Suspect]
     Indication: DRUG USE FOR UNKNOWN INDICATION
     Dosage: frequency: 5 mg twice
     Route: 048
     Dates: start: 20120307, end: 20120330
  9. DOMPERIDONE [Suspect]
     Indication: LUNG CARCINOMA
     Route: 048
     Dates: start: 201202, end: 20120330
  10. AMIODARONE [Concomitant]
     Route: 048
  11. DIFFU K [Concomitant]
     Route: 048

REACTIONS (1)
  - Pancreatitis acute [Recovered/Resolved]
